FAERS Safety Report 18050546 (Version 1)
Quarter: 2020Q3

REPORT INFORMATION
  Report Type: Spontaneous
  Country: ES (occurrence: ES)
  Receive Date: 20200721
  Receipt Date: 20200721
  Transmission Date: 20201103
  Serious: Yes (Other)
  Sender: FDA-Public Use
  Company Number: ES-MYLANLABS-2020M1064501

PATIENT
  Age: 48 Year
  Sex: Female
  Weight: 54 kg

DRUGS (1)
  1. CETIRIZINA MYLAN 10 MG COMPRIMIDOS RECUBIERTOS CON PEL?CULA EFG [Suspect]
     Active Substance: CETIRIZINE HYDROCHLORIDE
     Indication: RHINITIS PERENNIAL
     Dosage: 0?0?1
     Route: 048
     Dates: start: 20200408, end: 20200410

REACTIONS (3)
  - Somnolence [Not Recovered/Not Resolved]
  - Urinary retention [Not Recovered/Not Resolved]
  - Headache [Not Recovered/Not Resolved]

NARRATIVE: CASE EVENT DATE: 20200409
